FAERS Safety Report 23402079 (Version 2)
Quarter: 2024Q1

REPORT INFORMATION
  Report Type: Report from Study
  Country: MX (occurrence: None)
  Receive Date: 20240115
  Receipt Date: 20240117
  Transmission Date: 20240410
  Serious: Yes (Other)
  Sender: FDA-Public Use
  Company Number: 2024A008701

PATIENT
  Age: 700 Month
  Sex: Male

DRUGS (1)
  1. DAPAGLIFLOZIN [Suspect]
     Active Substance: DAPAGLIFLOZIN
     Indication: Cardiac failure
     Route: 048
     Dates: start: 202302

REACTIONS (8)
  - Asphyxia [Unknown]
  - Dizziness [Unknown]
  - Chest pain [Unknown]
  - Fatigue [Unknown]
  - Peripheral swelling [Unknown]
  - Limb discomfort [Unknown]
  - Hyperhidrosis [Recovering/Resolving]
  - Discomfort [Unknown]

NARRATIVE: CASE EVENT DATE: 20230201
